FAERS Safety Report 9343706 (Version 2)
Quarter: 2013Q3

REPORT INFORMATION
  Report Type: Report from Study
  Country: BR (occurrence: BR)
  Receive Date: 20130612
  Receipt Date: 20130814
  Transmission Date: 20140515
  Serious: Yes (Other)
  Sender: FDA-Public Use
  Company Number: PHHY2013BR059093

PATIENT
  Sex: Male
  Weight: 110 kg

DRUGS (8)
  1. RASILEZ [Suspect]
     Indication: HYPERTENSION
     Dosage: 1 DF, (300 MG) DAILY
     Route: 048
  2. ATENOLOL [Concomitant]
     Indication: HYPERTENSION
     Dosage: 2 DF (100MG) DAILY
     Route: 048
  3. ANLO [Concomitant]
     Indication: HYPERTENSION
     Dosage: 5 MG, DAILY
     Route: 048
  4. SOMALGIN CARDIO [Concomitant]
     Indication: VASCULAR GRAFT
     Dosage: 100 MG, DAILY
     Route: 048
  5. GLIFAGE [Concomitant]
     Indication: DIABETES MELLITUS
     Dosage: 3 DF (850MG) DAILY
     Route: 048
  6. DAFLON (DIOSMIN) [Concomitant]
     Indication: VASCULAR GRAFT
     Dosage: 500 MG, DAILY
     Route: 048
  7. SIMVASTATIN [Concomitant]
     Indication: BLOOD CHOLESTEROL INCREASED
     Dosage: 40 MG, DAILY
     Route: 048
  8. NATRILIX [Concomitant]
     Indication: ARTERIAL GRAFT
     Dosage: 1.5MG DAILY
     Route: 048

REACTIONS (4)
  - Dementia Alzheimer^s type [Recovering/Resolving]
  - Memory impairment [Recovering/Resolving]
  - Brain hypoxia [Not Recovered/Not Resolved]
  - Sleep disorder [Not Recovered/Not Resolved]
